FAERS Safety Report 24997144 (Version 1)
Quarter: 2025Q1

REPORT INFORMATION
  Report Type: Spontaneous
  Country: AU (occurrence: AU)
  Receive Date: 20250221
  Receipt Date: 20250221
  Transmission Date: 20250408
  Serious: Yes (Other)
  Sender: SANOFI AVENTIS
  Company Number: AU-SA-2025SA053535

PATIENT
  Age: 70 Year
  Sex: Male

DRUGS (25)
  1. PLAVIX [Suspect]
     Active Substance: CLOPIDOGREL BISULFATE
  2. ALLOPURINOL [Suspect]
     Active Substance: ALLOPURINOL
  3. FEXOFENADINE [Suspect]
     Active Substance: FEXOFENADINE HYDROCHLORIDE
  4. CYCLOPHOSPHAMIDE [Suspect]
     Active Substance: CYCLOPHOSPHAMIDE
  5. FLUDARABINE PHOSPHATE [Suspect]
     Active Substance: FLUDARABINE PHOSPHATE
  6. LOPERAMIDE [Suspect]
     Active Substance: LOPERAMIDE
  7. ONDANSETRON [Suspect]
     Active Substance: ONDANSETRON
  8. ACETAMINOPHEN [Suspect]
     Active Substance: ACETAMINOPHEN
  9. POTASSIUM CHLORIDE [Suspect]
     Active Substance: POTASSIUM CHLORIDE
  10. LISINOPRIL [Suspect]
     Active Substance: LISINOPRIL
  11. LEVOTHYROXINE SODIUM [Suspect]
     Active Substance: LEVOTHYROXINE SODIUM
  12. METOCLOPRAMIDE HYDROCHLORIDE [Suspect]
     Active Substance: METOCLOPRAMIDE HYDROCHLORIDE
  13. AMOXICILLIN TRIHYDRATE [Suspect]
     Active Substance: AMOXICILLIN
  14. AMLODIPINE [Suspect]
     Active Substance: AMLODIPINE BESYLATE
  15. SODIUM BICARBONATE [Suspect]
     Active Substance: SODIUM BICARBONATE
  16. BACTRIM [Suspect]
     Active Substance: SULFAMETHOXAZOLE\TRIMETHOPRIM
  17. LOMOTIL [Suspect]
     Active Substance: ATROPINE SULFATE\DIPHENOXYLATE HYDROCHLORIDE
  18. AMOXICILLIN\CLAVULANATE POTASSIUM [Suspect]
     Active Substance: AMOXICILLIN\CLAVULANATE POTASSIUM
  19. CARBOXYMETHYLCELLULOSE SODIUM [Suspect]
     Active Substance: CARBOXYMETHYLCELLULOSE SODIUM
  20. CODEINE PHOSPHATE [Suspect]
     Active Substance: CODEINE PHOSPHATE
  21. CYCLIZINE HYDROCHLORIDE [Suspect]
     Active Substance: CYCLIZINE HYDROCHLORIDE
  22. POSACONAZOLE [Suspect]
     Active Substance: POSACONAZOLE
  23. P32 SODIUM PHOSPHATE [Suspect]
     Active Substance: PHOSPHORUS P-32
  24. VALTREX [Suspect]
     Active Substance: VALACYCLOVIR HYDROCHLORIDE
  25. VITAMIN D3 [Suspect]
     Active Substance: CHOLECALCIFEROL

REACTIONS (1)
  - Dyspnoea [Unknown]

NARRATIVE: CASE EVENT DATE: 20201030
